FAERS Safety Report 9285609 (Version 3)
Quarter: 2013Q2

REPORT INFORMATION
  Report Type: Spontaneous
  Country: IT (occurrence: IT)
  Receive Date: 20130513
  Receipt Date: 20130613
  Transmission Date: 20140414
  Serious: Yes (Hospitalization, Other)
  Sender: FDA-Public Use
  Company Number: IT-JNJFOC-20130504633

PATIENT
  Age: 27 Year
  Sex: Female

DRUGS (3)
  1. PALEXIA COMPRESSE A RILASCIO PROLUNGATO [Suspect]
     Indication: PRODUCT USED FOR UNKNOWN INDICATION
     Route: 048
     Dates: start: 20130426, end: 20130426
  2. SEROQUEL [Suspect]
     Indication: PRODUCT USED FOR UNKNOWN INDICATION
     Route: 048
     Dates: start: 20130426, end: 20130426
  3. XANAX [Suspect]
     Indication: PRODUCT USED FOR UNKNOWN INDICATION
     Route: 048
     Dates: start: 20130426, end: 20130426

REACTIONS (7)
  - Intentional overdose [Recovered/Resolved]
  - Intentional self-injury [Recovered/Resolved]
  - Sopor [Recovered/Resolved]
  - Bradykinesia [Recovered/Resolved]
  - Hypertonia [Recovered/Resolved]
  - Bradyphrenia [Recovered/Resolved]
  - Vomiting [Recovered/Resolved]
